FAERS Safety Report 6154657-8 (Version None)
Quarter: 2009Q2

REPORT INFORMATION
  Report Type: 
  Country: None (occurrence: None)
  Receive Date: 20090414
  Receipt Date: 20090407
  Transmission Date: 20091009
  Serious: Yes (Hospitalization)
  Sender: FDA-Public Use
  Company Number: DE-ABBOTT-09P-062-0567037-00

PATIENT
  Sex: Female

DRUGS (4)
  1. HUMIRA [Suspect]
     Indication: ANKYLOSING SPONDYLITIS
     Route: 058
     Dates: start: 20080911, end: 20090222
  2. IBUPROFEN [Concomitant]
     Indication: PAIN
     Dosage: FORM: 800
     Dates: start: 20080911
  3. DEXIBUPROFEN [Concomitant]
     Indication: PAIN
  4. CORTISONE [Concomitant]
     Indication: ANKYLOSING SPONDYLITIS

REACTIONS (1)
  - INTERVERTEBRAL DISC PROTRUSION [None]
